FAERS Safety Report 19563463 (Version 2)
Quarter: 2021Q3

REPORT INFORMATION
  Report Type: Spontaneous
  Country: US (occurrence: US)
  Receive Date: 20210716
  Receipt Date: 20210723
  Transmission Date: 20211014
  Serious: Yes (Hospitalization)
  Sender: FDA-Public Use
  Company Number: US-AMGEN INC.-USASP2021106570

PATIENT
  Age: 65 Year
  Sex: Female
  Weight: 97.51 kg

DRUGS (2)
  1. AIMOVIG [Suspect]
     Active Substance: ERENUMAB-AOOE
     Indication: MIGRAINE
     Dosage: 140 MILLIGRAM
     Route: 065
     Dates: start: 20200324
  2. COVID?19 VACCINE [Concomitant]
     Indication: IMMUNISATION
     Dosage: UNK
     Route: 065
     Dates: start: 20210222

REACTIONS (7)
  - Wrong technique in product usage process [Unknown]
  - Allergic cough [Unknown]
  - Rash papular [Recovered/Resolved]
  - Accidental exposure to product [Unknown]
  - Rash pruritic [Recovered/Resolved]
  - COVID-19 [Unknown]
  - Incorrect dose administered by device [Unknown]

NARRATIVE: CASE EVENT DATE: 202010
